FAERS Safety Report 11606272 (Version 1)
Quarter: 2015Q4

REPORT INFORMATION
  Report Type: Spontaneous
  Country: US (occurrence: US)
  Receive Date: 20151007
  Receipt Date: 20151007
  Transmission Date: 20160304
  Serious: No
  Sender: FDA-Public Use
  Company Number: US-CELGENEUS-USA-2015095765

PATIENT
  Sex: Female

DRUGS (3)
  1. THALOMID [Suspect]
     Active Substance: THALIDOMIDE
     Route: 048
     Dates: start: 201504
  2. THALOMID [Suspect]
     Active Substance: THALIDOMIDE
     Indication: PLASMA CELL MYELOMA
     Route: 048
     Dates: start: 201208
  3. THALOMID [Suspect]
     Active Substance: THALIDOMIDE
     Route: 048
     Dates: start: 201508

REACTIONS (12)
  - Tinnitus [Unknown]
  - Fatigue [Unknown]
  - Abdominal distension [Unknown]
  - Flatulence [Unknown]
  - Pain of skin [Unknown]
  - Increased tendency to bruise [Unknown]
  - Dry eye [Unknown]
  - Dry mouth [Unknown]
  - Rash [Unknown]
  - Hypoaesthesia [Unknown]
  - Dyspepsia [Unknown]
  - Somnolence [Unknown]
